FAERS Safety Report 4302139-8 (Version None)
Quarter: 2004Q1

REPORT INFORMATION
  Report Type: 
  Country: None (occurrence: None)
  Receive Date: 20040220
  Receipt Date: 20040209
  Transmission Date: 20041129
  Serious: Yes (Death)
  Sender: FDA-Public Use
  Company Number: AU-JNJFOC-20040102850

PATIENT
  Age: 57 Year
  Sex: Male
  Weight: 52 kg

DRUGS (3)
  1. DURAGESIC [Suspect]
     Indication: PAIN
     Dosage: 1 PATCH (DOSE, FREQUENCY UNSPECIFIED); SEE IMAGE
  2. MORPHINE [Concomitant]
  3. STEROIDS (CORTICOSTEROID NOS) [Concomitant]

REACTIONS (1)
  - MEDICATION ERROR [None]
